FAERS Safety Report 21120801 (Version 1)
Quarter: 2022Q3

REPORT INFORMATION
  Report Type: Spontaneous
  Country: CN (occurrence: CN)
  Receive Date: 20220722
  Receipt Date: 20220722
  Transmission Date: 20221027
  Serious: Yes (Other)
  Sender: FDA-Public Use
  Company Number: CN-009507513-2207CHN006158

PATIENT
  Age: 72 Year
  Sex: Male
  Weight: 65 kg

DRUGS (4)
  1. CILASTATIN SODIUM\IMIPENEM [Suspect]
     Active Substance: CILASTATIN SODIUM\IMIPENEM
     Indication: Obstructive pancreatitis
     Dosage: 0.5 G, Q6H
     Route: 041
     Dates: start: 20220629, end: 20220703
  2. SODIUM CHLORIDE [Concomitant]
     Active Substance: SODIUM CHLORIDE
     Dosage: 100 ML
     Dates: start: 20220629
  3. PIPERACILLIN\SULBACTAM [Concomitant]
     Active Substance: PIPERACILLIN\SULBACTAM
     Indication: Anti-infective therapy
     Dosage: 4.5 GRAM, Q8H
     Dates: start: 20220626
  4. PIPERACILLIN\SULBACTAM [Concomitant]
     Active Substance: PIPERACILLIN\SULBACTAM
     Dosage: 4.5 GRAM, Q8H
     Dates: start: 20220703

REACTIONS (3)
  - Altered state of consciousness [Recovering/Resolving]
  - Muscle twitching [Recovering/Resolving]
  - Trismus [Unknown]

NARRATIVE: CASE EVENT DATE: 20220703
